FAERS Safety Report 23135372 (Version 3)
Quarter: 2024Q4

REPORT INFORMATION
  Report Type: Spontaneous
  Country: JP (occurrence: JP)
  Receive Date: 20231101
  Receipt Date: 20241216
  Transmission Date: 20250115
  Serious: Yes (Hospitalization)
  Sender: MERCK
  Company Number: JP-MSD-M2023-41650

PATIENT
  Sex: Female
  Weight: 35 kg

DRUGS (4)
  1. KEYTRUDA [Suspect]
     Active Substance: PEMBROLIZUMAB
     Indication: Non-small cell lung cancer stage IIIA
     Dosage: 200 MILLIGRAM, Q3W
     Route: 041
     Dates: start: 20220606, end: 20230818
  2. KEYTRUDA [Suspect]
     Active Substance: PEMBROLIZUMAB
     Indication: PD-L1 positive cancer
  3. ESOMEPRAZOLE MAGNESIUM [Concomitant]
     Active Substance: ESOMEPRAZOLE MAGNESIUM
     Indication: Gastrointestinal disorder prophylaxis
     Dosage: 1C, QD
     Route: 048
     Dates: start: 20180221
  4. BIOFERMIN [BIFIDOBACTERIUM NOS] [Concomitant]
     Indication: Gastrointestinal disorder prophylaxis
     Dosage: 2 TABLETS, BID
     Route: 048
     Dates: start: 20180110

REACTIONS (5)
  - Pleural effusion [Recovered/Resolved]
  - Pleurisy [Unknown]
  - Blood glucose decreased [Unknown]
  - Productive cough [Unknown]
  - Cough [Unknown]

NARRATIVE: CASE EVENT DATE: 20230101
